FAERS Safety Report 11311453 (Version 3)
Quarter: 2015Q3

REPORT INFORMATION
  Report Type: Spontaneous
  Country: US (occurrence: US)
  Receive Date: 20150727
  Receipt Date: 20150916
  Transmission Date: 20151125
  Serious: Yes (Death)
  Sender: FDA-Public Use
  Company Number: US-BEH-2015052705

PATIENT
  Age: 42 Year
  Sex: Male

DRUGS (6)
  1. PRIVIGEN [Suspect]
     Active Substance: HUMAN IMMUNOGLOBULIN G
     Indication: VIRAL INFECTION
     Route: 042
  2. PRIVIGEN [Suspect]
     Active Substance: HUMAN IMMUNOGLOBULIN G
     Route: 042
     Dates: start: 20131106
  3. PRIVIGEN [Suspect]
     Active Substance: HUMAN IMMUNOGLOBULIN G
     Route: 042
     Dates: start: 20131219
  4. ANTIBIOTICS [Concomitant]
     Active Substance: UNSPECIFIED INGREDIENT
  5. GLUCOCORTICOIDS [Concomitant]
     Active Substance: UNSPECIFIED INGREDIENT
     Dosage: HIGH DOSE
  6. ANTIVIRALS NOS [Concomitant]
     Active Substance: UNSPECIFIED INGREDIENT
     Dosage: HIGH DOSE

REACTIONS (2)
  - Drug ineffective for unapproved indication [Fatal]
  - Meningitis viral [Fatal]

NARRATIVE: CASE EVENT DATE: 201403
